FAERS Safety Report 6733638-7 (Version None)
Quarter: 2010Q2

REPORT INFORMATION
  Report Type: 
  Country: None (occurrence: None)
  Receive Date: 20100520
  Receipt Date: 20100511
  Transmission Date: 20101027
  Serious: Yes (Hospitalization, Other)
  Sender: FDA-Public Use
  Company Number: US-ASTRAZENECA-2010SE21456

PATIENT
  Age: 59 Year
  Sex: Female

DRUGS (1)
  1. NEXIUM [Suspect]
     Route: 048
     Dates: start: 20050101

REACTIONS (7)
  - ARTHRALGIA [None]
  - EXOSTOSIS [None]
  - EYE DISORDER [None]
  - FALL [None]
  - LIMB INJURY [None]
  - LOWER LIMB FRACTURE [None]
  - MENISCUS REMOVAL [None]
